FAERS Safety Report 24237215 (Version 1)
Quarter: 2024Q3

REPORT INFORMATION
  Report Type: Other
  Country: VE (occurrence: VE)
  Receive Date: 20240822
  Receipt Date: 20240822
  Transmission Date: 20241016
  Serious: Yes (Other)
  Sender: B BRAUN
  Company Number: VE-B.Braun Medical Inc.-2160684

PATIENT
  Age: 21 Year
  Sex: Female

DRUGS (2)
  1. BUPIVACAINE HYDROCHLORIDE [Suspect]
     Active Substance: BUPIVACAINE HYDROCHLORIDE
     Indication: Epidural anaesthesia
  2. Nonsteroidal analgesics and intravenous opioids [Concomitant]

REACTIONS (2)
  - Pneumorrhachis [Recovered/Resolved]
  - Maternal exposure during pregnancy [Recovered/Resolved]
